FAERS Safety Report 8804809 (Version 1)
Quarter: 2012Q4

REPORT INFORMATION
  Report Type: Spontaneous
  Country: US (occurrence: None)
  Receive Date: 20120918
  Receipt Date: 20120918
  Transmission Date: 20130627
  Serious: Yes (Other)
  Sender: FDA-Public Use
  Company Number: None

PATIENT
  Age: 53 Year
  Sex: Female
  Weight: 81.65 kg

DRUGS (3)
  1. ADCIRCA [Suspect]
     Route: 048
     Dates: start: 20120905, end: 20120909
  2. ADCIRCA [Suspect]
     Route: 048
     Dates: start: 20120905, end: 20120909
  3. SPORANOX [Suspect]
     Dosage: 250 mg daily po
     Route: 048
     Dates: start: 20111221, end: 20120909

REACTIONS (6)
  - Nausea [None]
  - Vomiting [None]
  - Arthralgia [None]
  - Joint swelling [None]
  - Blood alkaline phosphatase increased [None]
  - Anxiety [None]
